FAERS Safety Report 11069872 (Version 1)
Quarter: 2015Q2

REPORT INFORMATION
  Report Type: Spontaneous
  Country: AU (occurrence: AU)
  Receive Date: 20150427
  Receipt Date: 20150427
  Transmission Date: 20150821
  Serious: Yes (Other)
  Sender: FDA-Public Use
  Company Number: PHHY2015AU048971

PATIENT
  Age: 52 Year
  Sex: Male

DRUGS (7)
  1. CICLOSPORIN [Suspect]
     Active Substance: CYCLOSPORINE
     Indication: ACUTE GRAFT VERSUS HOST DISEASE IN SKIN
     Route: 042
  2. MESNA. [Suspect]
     Active Substance: MESNA
     Indication: GRAFT VERSUS HOST DISEASE IN GASTROINTESTINAL TRACT
  3. METHYLPREDNISOLONE. [Suspect]
     Active Substance: METHYLPREDNISOLONE
     Indication: RASH
     Dosage: 2 MG/KG, UNK
  4. MESNA. [Suspect]
     Active Substance: MESNA
     Indication: ACUTE GRAFT VERSUS HOST DISEASE IN SKIN
     Route: 065
  5. CICLOSPORIN [Suspect]
     Active Substance: CYCLOSPORINE
     Indication: GRAFT VERSUS HOST DISEASE IN GASTROINTESTINAL TRACT
  6. MESNA. [Suspect]
     Active Substance: MESNA
     Indication: ACUTE GRAFT VERSUS HOST DISEASE IN LIVER
  7. CICLOSPORIN [Suspect]
     Active Substance: CYCLOSPORINE
     Indication: ACUTE GRAFT VERSUS HOST DISEASE IN LIVER

REACTIONS (3)
  - Acute graft versus host disease in skin [Unknown]
  - Graft versus host disease in gastrointestinal tract [Unknown]
  - Acute graft versus host disease in liver [Unknown]
